FAERS Safety Report 5191355-1 (Version None)
Quarter: 2006Q4

REPORT INFORMATION
  Report Type: 
  Country: None (occurrence: None)
  Receive Date: 20061219
  Receipt Date: 20061219
  Transmission Date: 20070319
  Serious: Yes (Hospitalization)
  Sender: FDA-Public Use
  Company Number: None

PATIENT
  Sex: Female
  Weight: 74.8435 kg

DRUGS (6)
  1. ALPRAZOLAM [Suspect]
     Indication: PANIC DISORDER
     Dosage: PO  1MG  TID - QID
     Route: 048
  2. PRILOSEC [Concomitant]
  3. ESTRACE [Concomitant]
  4. EFFEXOR [Concomitant]
  5. AVANDIA [Concomitant]
  6. HYDROCHLOROTHIAZIDE [Concomitant]

REACTIONS (5)
  - CONDITION AGGRAVATED [None]
  - DRUG WITHDRAWAL SYNDROME [None]
  - FEELING JITTERY [None]
  - HALLUCINATION [None]
  - PHARMACEUTICAL PRODUCT COMPLAINT [None]
